FAERS Safety Report 18300249 (Version 1)
Quarter: 2020Q3

REPORT INFORMATION
  Report Type: Spontaneous
  Country: US (occurrence: US)
  Receive Date: 20200922
  Receipt Date: 20200922
  Transmission Date: 20201103
  Serious: Yes (Life-Threatening)
  Sender: FDA-Public Use
  Company Number: None

PATIENT
  Age: 88 Year
  Sex: Female
  Weight: 46.9 kg

DRUGS (2)
  1. CEFTRIAXONE INJECTION [Suspect]
     Active Substance: CEFTRIAXONE SODIUM
     Indication: CHRONIC OBSTRUCTIVE PULMONARY DISEASE
     Dates: start: 20200913, end: 20200913
  2. CEFTRIAXONE INJECTION [Suspect]
     Active Substance: CEFTRIAXONE SODIUM
     Indication: URINARY TRACT INFECTION
     Dates: start: 20200913, end: 20200913

REACTIONS (5)
  - Feeling hot [None]
  - Unresponsive to stimuli [None]
  - Cardiac arrest [None]
  - Oral discomfort [None]
  - Pulseless electrical activity [None]

NARRATIVE: CASE EVENT DATE: 20200913
